FAERS Safety Report 11261229 (Version 1)
Quarter: 2015Q3

REPORT INFORMATION
  Report Type: Report from Study
  Country: JP (occurrence: JP)
  Receive Date: 20150710
  Receipt Date: 20150710
  Transmission Date: 20151125
  Serious: Yes (Hospitalization)
  Sender: FDA-Public Use
  Company Number: JP-SA-2015SA098023

PATIENT
  Age: 8 Year
  Sex: Male
  Weight: 26.3 kg

DRUGS (18)
  1. FLUDARA [Concomitant]
     Active Substance: FLUDARABINE PHOSPHATE
     Indication: PREMEDICATION
     Dates: start: 20120726, end: 20120730
  2. SOLU-MEDROL [Concomitant]
     Active Substance: METHYLPREDNISOLONE SODIUM SUCCINATE
     Dosage: FOR UNDERLYING DISEASE/CONCURRENT CONDITION (STARTED AT SECOND PREVIOUS TRANSPLANTATION)
     Dates: start: 20120529, end: 20121031
  3. VENOGLOBULIN [Concomitant]
     Active Substance: HUMAN IMMUNOGLOBULIN G
     Indication: PROPHYLAXIS
     Dates: end: 20121019
  4. UROMITEXAN [Concomitant]
     Active Substance: MESNA
     Indication: PROPHYLAXIS
     Dates: start: 20120726, end: 20120730
  5. ENDOXAN [Concomitant]
     Active Substance: CYCLOPHOSPHAMIDE
     Indication: PREMEDICATION
     Dates: start: 20120726, end: 20120730
  6. SOLU-CORTEF [Concomitant]
     Active Substance: HYDROCORTISONE SODIUM SUCCINATE
     Indication: PROPHYLAXIS
     Dosage: INTERMITTENTLY
     Dates: start: 20120529, end: 20121031
  7. CELLCEPT [Concomitant]
     Active Substance: MYCOPHENOLATE MOFETIL\MYCOPHENOLATE MOFETIL HYDROCHLORIDE
     Indication: PROPHYLAXIS AGAINST GRAFT VERSUS HOST DISEASE
     Dates: start: 20120803
  8. MEDROL [Concomitant]
     Active Substance: METHYLPREDNISOLONE
     Indication: PROPHYLAXIS
     Dates: start: 20121101
  9. MEROPEN [Concomitant]
     Active Substance: MEROPENEM
     Dates: start: 20120805, end: 20120808
  10. CIPROXAN [Concomitant]
     Active Substance: CIPROFLOXACIN
     Route: 042
     Dates: start: 20120807, end: 20120821
  11. PROGRAF [Suspect]
     Active Substance: TACROLIMUS\TACROLIMUS ANHYDROUS
     Indication: PROPHYLAXIS AGAINST GRAFT VERSUS HOST DISEASE
     Route: 065
     Dates: start: 20120803, end: 20120806
  12. MEROPEN [Concomitant]
     Active Substance: MEROPENEM
     Dates: start: 20120822, end: 20120824
  13. THYMOGLOBULINE [Suspect]
     Active Substance: LAPINE T-LYMPHOCYTE IMMUNE GLOBULIN
     Indication: BONE MARROW CONDITIONING REGIMEN
     Dosage: ADMINISTERED OVER 30 MIN.
     Route: 042
     Dates: start: 20120727, end: 20120727
  14. VICCLOX [Concomitant]
     Active Substance: ACYCLOVIR SODIUM
     Indication: PROPHYLAXIS
     Dosage: IV INFUSION
     Dates: end: 20120910
  15. CEFPIROME [Concomitant]
     Active Substance: CEFPIROME
     Dates: start: 20120806, end: 20120807
  16. THYMOGLOBULINE [Suspect]
     Active Substance: LAPINE T-LYMPHOCYTE IMMUNE GLOBULIN
     Indication: BONE MARROW CONDITIONING REGIMEN
     Dosage: ADMINISTERED OVER 26 HOURS AND 30 MIN.
     Route: 042
     Dates: start: 20120727, end: 20120727
  17. CEFPIROME [Concomitant]
     Active Substance: CEFPIROME
     Dates: start: 20120916, end: 20120920
  18. CEFPIROME [Concomitant]
     Active Substance: CEFPIROME
     Dates: start: 20121014, end: 20121022

REACTIONS (6)
  - Cytomegalovirus viraemia [Recovered/Resolved]
  - Glucose tolerance impaired [Recovered/Resolved]
  - Histiocytosis haematophagic [Recovered/Resolved]
  - Cytomegalovirus viraemia [Recovered/Resolved]
  - Staphylococcal bacteraemia [Recovered/Resolved]
  - Febrile neutropenia [Recovered/Resolved]

NARRATIVE: CASE EVENT DATE: 20120808
